FAERS Safety Report 5450170-1 (Version None)
Quarter: 2007Q3

REPORT INFORMATION
  Report Type: 
  Country: None (occurrence: None)
  Receive Date: 20070912
  Receipt Date: 20070904
  Transmission Date: 20080115
  Serious: Yes (Hospitalization)
  Sender: FDA-Public Use
  Company Number: ESWYE021413JUL07

PATIENT
  Age: 49 Year
  Sex: Male
  Weight: 70 kg

DRUGS (4)
  1. TAZOCEL [Suspect]
     Route: 042
     Dates: start: 20070606, end: 20070612
  2. OMEPRAZOLE [Concomitant]
     Route: 048
     Dates: start: 20070606, end: 20070612
  3. ENOXAPARIN SODIUM [Concomitant]
     Route: 058
     Dates: start: 20070606, end: 20070612
  4. TARGOCID [Suspect]
     Route: 042
     Dates: start: 20070606, end: 20070612

REACTIONS (2)
  - LEUKOCYTOCLASTIC VASCULITIS [None]
  - RASH MACULO-PAPULAR [None]
